FAERS Safety Report 5808487-4 (Version None)
Quarter: 2008Q3

REPORT INFORMATION
  Report Type: 
  Country: None (occurrence: None)
  Receive Date: 20080714
  Receipt Date: 20080703
  Transmission Date: 20090109
  Serious: Yes (Hospitalization)
  Sender: FDA-Public Use
  Company Number: JP-NOVOPROD-276890

PATIENT
  Sex: Female

DRUGS (1)
  1. GLUCAGON [Suspect]
     Indication: COLONOSCOPY
     Dosage: 1 MG, SINGLE
     Route: 030
     Dates: start: 20080624, end: 20080624

REACTIONS (3)
  - BLOOD PRESSURE DECREASED [None]
  - BRADYCARDIA [None]
  - DIZZINESS [None]
